FAERS Safety Report 10170278 (Version 2)
Quarter: 2014Q2

REPORT INFORMATION
  Report Type: Spontaneous
  Country: JP (occurrence: JP)
  Receive Date: 20140513
  Receipt Date: 20140527
  Transmission Date: 20141212
  Serious: Yes (Other)
  Sender: FDA-Public Use
  Company Number: PHHY2014JP057535

PATIENT
  Sex: Female

DRUGS (1)
  1. AFINITOR [Suspect]
     Indication: ANGIOMYOLIPOMA
     Dosage: 5 MG, DAILY
     Route: 048
     Dates: start: 201402

REACTIONS (1)
  - Sudden hearing loss [Not Recovered/Not Resolved]
